FAERS Safety Report 10040663 (Version 2)
Quarter: 2014Q1

REPORT INFORMATION
  Report Type: Spontaneous
  Country: US (occurrence: US)
  Receive Date: 20140327
  Receipt Date: 20140327
  Transmission Date: 20141002
  Serious: Yes (Hospitalization)
  Sender: FDA-Public Use
  Company Number: US-EISAI INC-E2080-00709-SPO-US

PATIENT
  Age: 43 Year
  Sex: Female
  Weight: 101 kg

DRUGS (6)
  1. BANZEL [Suspect]
     Indication: EPILEPSY
     Route: 048
     Dates: start: 20140125, end: 201402
  2. BANZEL [Suspect]
     Route: 048
     Dates: start: 201402, end: 20140317
  3. ALBUTEROL [Concomitant]
  4. TRILEPTAL [Concomitant]
     Indication: EPILEPSY
     Dosage: UNKNOWN
     Dates: end: 20140227
  5. LAMOTRIGINE [Concomitant]
     Indication: EPILEPSY
  6. PREDNISONE [Concomitant]
     Indication: ASTHMA

REACTIONS (2)
  - Hallucination [Recovered/Resolved]
  - Suicidal ideation [Recovered/Resolved]
